FAERS Safety Report 5091481-1 (Version None)
Quarter: 2006Q3

REPORT INFORMATION
  Report Type: 
  Country: None (occurrence: None)
  Receive Date: 20060829
  Receipt Date: 20060818
  Transmission Date: 20061208
  Serious: Yes (Hospitalization)
  Sender: FDA-Public Use
  Company Number: FR-GLAXOSMITHKLINE-B0435563A

PATIENT
  Age: 40 Year
  Sex: Female

DRUGS (3)
  1. LAMICTAL [Suspect]
     Indication: EPILEPSY
     Dosage: 100MG TWICE PER DAY
     Route: 048
     Dates: start: 20060101, end: 20060801
  2. RIVOTRIL [Concomitant]
     Indication: EPILEPSY
     Route: 065
  3. GARDENAL [Concomitant]
     Indication: EPILEPSY
     Route: 065

REACTIONS (13)
  - AMNESIA [None]
  - COAGULATION FACTOR DECREASED [None]
  - GRAND MAL CONVULSION [None]
  - HEAD INJURY [None]
  - HEPATOCELLULAR DAMAGE [None]
  - HYPERTHERMIA [None]
  - PSYCHOMOTOR RETARDATION [None]
  - RHABDOMYOLYSIS [None]
  - STATUS EPILEPTICUS [None]
  - THROMBOCYTOPENIA [None]
  - THROMBOPHLEBITIS SUPERFICIAL [None]
  - TRAUMATIC HAEMATOMA [None]
  - VOMITING [None]
